FAERS Safety Report 4521803-9 (Version None)
Quarter: 2004Q4

REPORT INFORMATION
  Report Type: 
  Country: None (occurrence: None)
  Receive Date: 20041209
  Receipt Date: 20041130
  Transmission Date: 20050328
  Serious: Yes (Other)
  Sender: FDA-Public Use
  Company Number: GB-JNJFOC-20041200654

PATIENT
  Age: 7 Year
  Sex: Male
  Weight: 18.6 kg

DRUGS (3)
  1. TOPIRMATE [Suspect]
     Indication: EPILEPSY
     Route: 049
     Dates: start: 20010101, end: 20041001
  2. VALPROATE SODIUM [Concomitant]
     Route: 049
  3. LEVETIRACETAM [Concomitant]
     Route: 049

REACTIONS (2)
  - DYSPHAGIA [None]
  - MASTICATION DISORDER [None]
